FAERS Safety Report 18061033 (Version 3)
Quarter: 2023Q2

REPORT INFORMATION
  Report Type: Spontaneous
  Country: US (occurrence: US)
  Receive Date: 20200723
  Receipt Date: 20230407
  Transmission Date: 20230722
  Serious: Yes (Other)
  Sender: FDA-Public Use
  Company Number: US-GILEAD-2020-0484332

PATIENT
  Age: 55 Year
  Sex: Female
  Weight: 71.202 kg

DRUGS (34)
  1. TRUVADA [Suspect]
     Active Substance: EMTRICITABINE\TENOFOVIR DISOPROXIL FUMARATE
     Indication: HIV infection
     Dosage: UNK
     Route: 065
     Dates: start: 20130813, end: 20171227
  2. COMPLERA [Suspect]
     Active Substance: EMTRICITABINE\RILPIVIRINE HYDROCHLORIDE\TENOFOVIR DISOPROXIL FUMARATE
     Indication: HIV infection
     Route: 065
  3. BIKTARVY [Concomitant]
     Active Substance: BICTEGRAVIR SODIUM\EMTRICITABINE\TENOFOVIR ALAFENAMIDE FUMARATE
  4. DESCOVY [Concomitant]
     Active Substance: EMTRICITABINE\TENOFOVIR ALAFENAMIDE FUMARATE
  5. LEXIVA [Concomitant]
     Active Substance: FOSAMPRENAVIR CALCIUM
  6. TIVICAY [Concomitant]
     Active Substance: DOLUTEGRAVIR SODIUM
  7. TRIZIVIR [Concomitant]
     Active Substance: ABACAVIR SULFATE\LAMIVUDINE\ZIDOVUDINE
  8. ALBUTEROL SULFATE [Concomitant]
     Active Substance: ALBUTEROL SULFATE
  9. CETIRIZINE [Concomitant]
     Active Substance: CETIRIZINE HYDROCHLORIDE
  10. FAMOTIDINE [Concomitant]
     Active Substance: FAMOTIDINE
  11. OMEPRAZOLE [Concomitant]
     Active Substance: OMEPRAZOLE
  12. COUMADIN [Concomitant]
     Active Substance: WARFARIN SODIUM
  13. CYCLOBENZAPRINE [Concomitant]
     Active Substance: CYCLOBENZAPRINE
  14. MICONAZOLE [Concomitant]
     Active Substance: MICONAZOLE
  15. PRAVASTATIN [Concomitant]
     Active Substance: PRAVASTATIN
  16. METRONIDAZOLE [Concomitant]
     Active Substance: METRONIDAZOLE
  17. NICORELIEF [Concomitant]
     Active Substance: NICOTINE
  18. VALACYCLOVIR HYDROCHLORIDE [Concomitant]
     Active Substance: VALACYCLOVIR HYDROCHLORIDE
  19. IPRATROPIUM [Concomitant]
     Active Substance: IPRATROPIUM
  20. DOXYCYCLINE HYDROCHLORIDE [Concomitant]
     Active Substance: DOXYCYCLINE HYDROCHLORIDE
  21. KETOCONAZOLE [Concomitant]
     Active Substance: KETOCONAZOLE
  22. AMMONIUM LACTATE [Concomitant]
     Active Substance: AMMONIUM LACTATE
  23. LORATADINE [Concomitant]
     Active Substance: LORATADINE
  24. FLUTICASONE PROPIONATE [Concomitant]
     Active Substance: FLUTICASONE PROPIONATE
  25. TRAMADOL [Concomitant]
     Active Substance: TRAMADOL
  26. MAPAP [Concomitant]
     Active Substance: ACETAMINOPHEN
  27. DOCUSATE [Concomitant]
     Active Substance: DOCUSATE
  28. AMOXICILLIN\CLAVULANATE POTASSIUM [Concomitant]
     Active Substance: AMOXICILLIN\CLAVULANATE POTASSIUM
  29. CENTRAL-VITE [Concomitant]
  30. BENZONATATE [Concomitant]
     Active Substance: BENZONATATE
  31. CLINDAMYCIN [Concomitant]
     Active Substance: CLINDAMYCIN
  32. LEVOFLOXACIN [Concomitant]
     Active Substance: LEVOFLOXACIN
  33. FOSAMPRENAVIR CALCIUM [Concomitant]
     Active Substance: FOSAMPRENAVIR CALCIUM
  34. CALCIUM\VITAMIN D [Concomitant]
     Active Substance: CALCIUM\VITAMIN D

REACTIONS (11)
  - Chronic kidney disease [Not Recovered/Not Resolved]
  - Multiple fractures [Not Recovered/Not Resolved]
  - Osteoporosis [Not Recovered/Not Resolved]
  - Blood creatinine increased [Not Recovered/Not Resolved]
  - Bone density decreased [Not Recovered/Not Resolved]
  - Osteopenia [Not Recovered/Not Resolved]
  - Pain [Recovered/Resolved]
  - Emotional distress [Recovered/Resolved]
  - Gait disturbance [Not Recovered/Not Resolved]
  - Foot fracture [Not Recovered/Not Resolved]
  - Anaemia [Not Recovered/Not Resolved]

NARRATIVE: CASE EVENT DATE: 20150501
